FAERS Safety Report 10162410 (Version 1)
Quarter: 2014Q2

REPORT INFORMATION
  Report Type: Spontaneous
  Country: US (occurrence: US)
  Receive Date: 20140509
  Receipt Date: 20140509
  Transmission Date: 20141212
  Serious: No
  Sender: FDA-Public Use
  Company Number: US-GLAXOSMITHKLINE-A1039346A

PATIENT
  Age: 64 Year
  Sex: Female

DRUGS (4)
  1. BACTROBAN [Suspect]
     Indication: PRODUCT USED FOR UNKNOWN INDICATION
     Route: 061
     Dates: start: 2006
  2. MUPIROCIN [Suspect]
     Indication: LACERATION
     Route: 061
  3. MUPIROCIN [Suspect]
     Indication: LACERATION
     Dosage: 1APP TWICE PER DAY
     Route: 061
  4. NO CONCURRENT MEDICATION [Concomitant]

REACTIONS (2)
  - Drug ineffective [Recovering/Resolving]
  - Product quality issue [Recovering/Resolving]
